FAERS Safety Report 7032400-8 (Version None)
Quarter: 2010Q4

REPORT INFORMATION
  Report Type: 
  Country: None (occurrence: None)
  Receive Date: 20101005
  Receipt Date: 20090115
  Transmission Date: 20110411
  Serious: Yes (Hospitalization)
  Sender: FDA-Public Use
  Company Number: 2009PV000046

PATIENT
  Age: 51 Year
  Sex: Female

DRUGS (8)
  1. DEPOCYT [Suspect]
     Indication: NON-HODGKIN'S LYMPHOMA
     Dosage: 50 MG;QD;INTH
     Route: 037
     Dates: start: 20081210
  2. RITUXIMAB (RITUXIMAB) [Suspect]
     Indication: NON-HODGKIN'S LYMPHOMA
     Dosage: 630 MG; IV
     Route: 042
     Dates: start: 20081208
  3. METHOTREXATE [Suspect]
     Indication: NON-HODGKIN'S LYMPHOMA
     Dosage: 5100 MG;INTH
     Route: 037
     Dates: start: 20081209
  4. VINCRISTINE (VINCRISTINE) [Suspect]
     Indication: NON-HODGKIN'S LYMPHOMA
     Dosage: 2 MG;IV
     Route: 042
     Dates: start: 20081209
  5. DOXORUBICIN (DOXORUBICIN) [Suspect]
     Indication: NON-HODGKIN'S LYMPHOMA
     Dosage: 100 MG; IV
     Route: 042
     Dates: start: 20081210
  6. CYCLOPHOSPHAMIDE [Suspect]
     Indication: NON-HODGKIN'S LYMPHOMA
     Dosage: 2520 MG; IV
     Route: 042
     Dates: start: 20081210
  7. SOLU-MEDROL [Suspect]
     Indication: NON-HODGKIN'S LYMPHOMA
     Dosage: 320 MG; IV
     Route: 042
     Dates: start: 20081209
  8. METHYLPREDNISOLONE 9METHYLPREDNISOLONE) [Suspect]
     Indication: NON-HODGKIN'S LYMPHOMA
     Dosage: 160 MG; IV
     Route: 042
     Dates: start: 20081213

REACTIONS (4)
  - FEBRILE BONE MARROW APLASIA [None]
  - ORAL FUNGAL INFECTION [None]
  - PLEURAL EFFUSION [None]
  - RESPIRATORY MONILIASIS [None]
